FAERS Safety Report 5445828-4 (Version None)
Quarter: 2007Q3

REPORT INFORMATION
  Report Type: 
  Country: None (occurrence: None)
  Receive Date: 20070904
  Receipt Date: 20070814
  Transmission Date: 20080115
  Serious: Yes (Other)
  Sender: FDA-Public Use
  Company Number: 2007RR-09442

PATIENT
  Age: 62 Year
  Sex: Male

DRUGS (4)
  1. ASPIRIN TABLETS BP 300MG (ASPIRIN) [Suspect]
  2. ATENOLOL [Suspect]
  3. CARBAMAZEPINE [Suspect]
  4. SIMVASATATIN 10MG TABLETS (SIMVASTATIN) UNKNOWN [Suspect]

REACTIONS (3)
  - ATRIAL FLUTTER [None]
  - ATRIOVENTRICULAR BLOCK [None]
  - TACHYCARDIA [None]
